FAERS Safety Report 7337515-2 (Version None)
Quarter: 2011Q1

REPORT INFORMATION
  Report Type: 
  Country: None (occurrence: None)
  Receive Date: 20110308
  Receipt Date: 20090726
  Transmission Date: 20110831
  Serious: Yes (Death, Other)
  Sender: FDA-Public Use
  Company Number: US-BAYER-200927713NA

PATIENT
  Sex: Female
  Weight: 125.5 kg

DRUGS (29)
  1. POTASSIUM [Concomitant]
     Dosage: 20 MEQ, UNK
     Route: 048
     Dates: start: 20060123
  2. PLATELETS [Concomitant]
     Dosage: 3 U, DAY OF SURGERY
     Dates: start: 20060907, end: 20060907
  3. UNCODEABLE ^UNCLASSIFIABLE^ [Concomitant]
     Dosage: 2 U, DAY OF SURGERY
     Dates: start: 20060907, end: 20060907
  4. ASPIRIN [Concomitant]
     Indication: PRODUCT USED FOR UNKNOWN INDICATION
     Dosage: 81 MG, LONG TERM
     Route: 048
  5. VERSED [Concomitant]
     Indication: PRODUCT USED FOR UNKNOWN INDICATION
     Dosage: 1.5 MG, DURING SURGERY
     Route: 042
     Dates: start: 20060907, end: 20060907
  6. TRASYLOL [Suspect]
     Indication: AORTIC VALVE REPLACEMENT
     Dosage: 200 ML FOLLOWED BY CONTINOUS INFUSION AT 50 ML PER HOUR
     Route: 042
     Dates: start: 20060907, end: 20060907
  7. TRASYLOL [Suspect]
     Indication: CORONARY ARTERY BYPASS
  8. AMIODARONE [Concomitant]
     Indication: ARRHYTHMIA
     Dosage: UNK
     Dates: start: 20060908
  9. LASIX [Concomitant]
     Dosage: 40 MG, UNK
     Route: 048
     Dates: start: 20060123
  10. LEVOPHED [Concomitant]
     Indication: PRODUCT USED FOR UNKNOWN INDICATION
     Dosage: 4/250 MCG DURING SURGERY
     Dates: start: 20060907, end: 20060907
  11. LIPITOR [Concomitant]
     Dosage: 20 MG, UNK
  12. SUBLIMAZE PRESERVATIVE FREE [Concomitant]
     Indication: PRODUCT USED FOR UNKNOWN INDICATION
     Dosage: 35 ML, DURING SURGERY
     Route: 042
     Dates: start: 20060907, end: 20060907
  13. FISH OIL [Concomitant]
     Dosage: UNKNOWN
     Route: 048
  14. RED BLOOD CELLS [Concomitant]
     Dosage: TOTAL OF 8 UNITS
     Dates: start: 20060908, end: 20060910
  15. COREG [Concomitant]
     Indication: PRODUCT USED FOR UNKNOWN INDICATION
     Dosage: 6.25 MG, UNK
     Route: 048
     Dates: start: 20060710
  16. AVAPRO [Concomitant]
     Indication: PRODUCT USED FOR UNKNOWN INDICATION
     Dosage: 150 MG, UNK
     Route: 048
  17. ANCEF [Concomitant]
     Indication: PRODUCT USED FOR UNKNOWN INDICATION
     Dosage: 2 G, DURING SURGERY
     Route: 042
     Dates: start: 20060907, end: 20060907
  18. LASIX [Concomitant]
     Indication: PRODUCT USED FOR UNKNOWN INDICATION
     Dosage: 20 MG, DURING SURGERY
     Route: 042
     Dates: start: 20060907, end: 20060907
  19. METOPROLOL [Concomitant]
     Indication: PRODUCT USED FOR UNKNOWN INDICATION
     Dosage: 50 MG, UNK
     Route: 048
     Dates: start: 20051212, end: 20060324
  20. PROTAMINE SULFATE [Concomitant]
     Indication: PRODUCT USED FOR UNKNOWN INDICATION
     Dosage: 10 MG, DURING SURGERY
     Route: 042
     Dates: start: 20060907, end: 20060907
  21. PRIMACOR [Concomitant]
     Indication: PRODUCT USED FOR UNKNOWN INDICATION
     Dosage: DURING SURGERY
     Route: 042
     Dates: start: 20060907, end: 20060907
  22. DOBUTAMINE HCL [Concomitant]
     Indication: AORTIC VALVE REPLACEMENT
     Dosage: 75 MCG/KG/HR DURING SURGERY
     Route: 042
     Dates: start: 20060907, end: 20060907
  23. RED BLOOD CELLS [Concomitant]
     Dosage: 4 U DAY OF SURGERY
     Dates: start: 20060907, end: 20060907
  24. ZETIA [Concomitant]
     Indication: PRODUCT USED FOR UNKNOWN INDICATION
     Dosage: 10 MG, UNK
     Route: 048
     Dates: start: 20060508
  25. AMIODARONE [Concomitant]
     Indication: PRODUCT USED FOR UNKNOWN INDICATION
     Dosage: 200 MG, UNK
     Route: 048
     Dates: start: 20041014, end: 20060623
  26. PRILOSEC [Concomitant]
     Dosage: 20 MG, UNK
     Route: 048
     Dates: end: 20060720
  27. POLYGAM S/D [Concomitant]
     Dosage: INJECTION
  28. PLATELETS [Concomitant]
     Dosage: TOTAL OF 8 UNITS
     Dates: start: 20060908, end: 20060910
  29. FRESH FROZEN PLASMA [Concomitant]
     Dosage: TOTAL OF 12 UNITS
     Dates: start: 20060907, end: 20060910

REACTIONS (9)
  - DEPRESSION [None]
  - RENAL FAILURE [None]
  - INJURY [None]
  - PAIN [None]
  - ANXIETY [None]
  - FEAR [None]
  - UNEVALUABLE EVENT [None]
  - ANHEDONIA [None]
  - CARDIOGENIC SHOCK [None]
